FAERS Safety Report 7134607-8 (Version None)
Quarter: 2010Q4

REPORT INFORMATION
  Report Type: 
  Country: None (occurrence: None)
  Receive Date: 20101130
  Receipt Date: 20101130
  Transmission Date: 20110411
  Serious: Yes (Death)
  Sender: FDA-Public Use
  Company Number: None

PATIENT
  Age: 76 Year
  Sex: Female
  Weight: 76 kg

DRUGS (6)
  1. XELODA [Suspect]
     Indication: BREAST CANCER
     Dosage: 2000 MG Q AM PO
     Route: 048
     Dates: start: 20101028, end: 20101107
  2. XELODA [Suspect]
     Indication: BREAST CANCER
     Dosage: 1500 MG Q PM PO
     Route: 048
     Dates: start: 20101028, end: 20101107
  3. ZOLOFT [Concomitant]
  4. COUMADIN [Concomitant]
  5. NEURONTIN [Concomitant]
  6. CLONAZEPAM [Concomitant]

REACTIONS (10)
  - ASTHENIA [None]
  - DIARRHOEA [None]
  - DRUG TOXICITY [None]
  - MOUTH HAEMORRHAGE [None]
  - MUCOSAL INFLAMMATION [None]
  - NEUTROPENIA [None]
  - PALMAR-PLANTAR ERYTHRODYSAESTHESIA SYNDROME [None]
  - RASH GENERALISED [None]
  - THROMBOCYTOPENIA [None]
  - URINARY INCONTINENCE [None]
